FAERS Safety Report 10697693 (Version 1)
Quarter: 2015Q1

REPORT INFORMATION
  Report Type: Spontaneous
  Country: CN (occurrence: CN)
  Receive Date: 20150108
  Receipt Date: 20150108
  Transmission Date: 20150721
  Serious: Yes (Hospitalization, Other)
  Sender: FDA-Public Use
  Company Number: CN-ASTRAZENECA-2015SE00954

PATIENT
  Age: 80 Year
  Sex: Male

DRUGS (5)
  1. CALCULUS BOVIS [Concomitant]
  2. ZOLEDRONIC ACID [Concomitant]
     Active Substance: ZOLEDRONIC ACID
     Dosage: MONTHLY
  3. CASODEX [Suspect]
     Active Substance: BICALUTAMIDE
     Route: 048
  4. UBENIMEX [Concomitant]
     Active Substance: UBENIMEX
  5. ZOLADEX [Suspect]
     Active Substance: GOSERELIN ACETATE
     Route: 058

REACTIONS (7)
  - Platelet count decreased [Unknown]
  - Cardiac failure congestive [Unknown]
  - Pneumonia [Unknown]
  - Red blood cell count decreased [Unknown]
  - Nasopharyngitis [Unknown]
  - Asthma exercise induced [Unknown]
  - Oedema peripheral [Unknown]
